FAERS Safety Report 4571117-6 (Version None)
Quarter: 2005Q1

REPORT INFORMATION
  Report Type: 
  Country: None (occurrence: None)
  Receive Date: 20050202
  Receipt Date: 20050124
  Transmission Date: 20050727
  Serious: Yes (Hospitalization)
  Sender: FDA-Public Use
  Company Number: 205911

PATIENT
  Age: 62 Year
  Sex: Female

DRUGS (7)
  1. HERCEPTIN [Suspect]
     Indication: BREAST CANCER
     Dosage: SEE IMAGE
     Route: 042
     Dates: start: 20040304, end: 20040304
  2. HERCEPTIN REGIMEN #2 [Suspect]
     Dosage: 2 MG/KG, Q3W, INTRAVENOUS
     Route: 042
     Dates: end: 20040331
  3. DOCETAXEL (DOCETAXEL) [Concomitant]
     Indication: BREAST CANCER
     Dosage: 220 MG, Q3W, INTRAVENOUS
     Route: 042
     Dates: start: 20040304, end: 20040324
  4. ONDANSETRON HCL [Concomitant]
  5. MEPREDNISONE (MEPREDNISONE) [Concomitant]
  6. DIPHENHYDRAMINE (DIPHENHYDRAMINE NOS) [Concomitant]
  7. RANITIDINE [Concomitant]

REACTIONS (3)
  - FEBRILE NEUTROPENIA [None]
  - PNEUMONIA [None]
  - WHITE BLOOD CELL COUNT DECREASED [None]
